FAERS Safety Report 7222795-4 (Version None)
Quarter: 2011Q1

REPORT INFORMATION
  Report Type: 
  Country: None (occurrence: None)
  Receive Date: 20110112
  Receipt Date: 20110107
  Transmission Date: 20110831
  Serious: Yes (Disabling)
  Sender: FDA-Public Use
  Company Number: GB-B.I. PHARMACEUTICALS,INC./RIDGEFIELD-2011-BP-00670YA

PATIENT
  Age: 86 Year
  Sex: Male
  Weight: 95 kg

DRUGS (7)
  1. PRAVASTATIN SODIUM [Concomitant]
  2. BENDROFLUMETHIAZIDE [Concomitant]
  3. VALSARTAN [Concomitant]
  4. WARFARIN SODIUM [Concomitant]
  5. TAMSULOSIN HCL [Suspect]
     Indication: PROSTATE CANCER
     Dosage: 400 MCG
     Dates: start: 20101004, end: 20101226
  6. SENNA (SENNA ALEXANDRINA) [Concomitant]
  7. AMIODARONE HYDROCHLORIDE [Concomitant]

REACTIONS (3)
  - ELECTROCARDIOGRAM QT PROLONGED [None]
  - SYNCOPE [None]
  - ORTHOSTATIC HYPOTENSION [None]
